FAERS Safety Report 23700433 (Version 2)
Quarter: 2024Q3

REPORT INFORMATION
  Report Type: Report from Study
  Country: TR (occurrence: TR)
  Receive Date: 20240403
  Receipt Date: 20240710
  Transmission Date: 20241016
  Serious: Yes (Death)
  Sender: TEVA
  Company Number: TR-TEVA-VS-3176157

PATIENT
  Age: 44 Year
  Sex: Male

DRUGS (3)
  1. CARBOPLATIN [Suspect]
     Active Substance: CARBOPLATIN
     Indication: Germ cell neoplasm
     Dosage: AREA UNDER THE CURVE (AUC) OF 10
     Route: 065
  2. ETOPOSIDE [Suspect]
     Active Substance: ETOPOSIDE
     Indication: Germ cell neoplasm
     Route: 065
  3. CYCLOPHOSPHAMIDE [Suspect]
     Active Substance: CYCLOPHOSPHAMIDE
     Indication: Germ cell neoplasm
     Dosage: ON DAYS 2 TO 4.
     Route: 065

REACTIONS (2)
  - Thrombocytopenia [Fatal]
  - Tumour haemorrhage [Fatal]
